FAERS Safety Report 24212116 (Version 1)
Quarter: 2024Q3

REPORT INFORMATION
  Report Type: Spontaneous
  Country: US (occurrence: US)
  Receive Date: 20240815
  Receipt Date: 20240815
  Transmission Date: 20241017
  Serious: No
  Sender: AMGEN
  Company Number: US-AMGEN-USASP2024160591

PATIENT

DRUGS (1)
  1. MVASI [Suspect]
     Active Substance: BEVACIZUMAB-AWWB
     Indication: Product used for unknown indication
     Dosage: 1000 MILLIGRAM. (DOSE ORDERED: 1000 MG,  DOSE REQUESTED: 1000 MG)
     Route: 065

REACTIONS (1)
  - Pulmonary mass [Unknown]

NARRATIVE: CASE EVENT DATE: 20240712
